FAERS Safety Report 9165804 (Version 1)
Quarter: 2013Q1

REPORT INFORMATION
  Report Type: Spontaneous
  Country: US (occurrence: US)
  Receive Date: 20130315
  Receipt Date: 20130315
  Transmission Date: 20140127
  Serious: No
  Sender: FDA-Public Use
  Company Number: US-009507513-1303USA003453

PATIENT
  Sex: Female

DRUGS (2)
  1. TEMODAR [Suspect]
     Indication: NEOPLASM MALIGNANT
     Dosage: 140 MG, QD
     Route: 048
  2. CAPROS [Concomitant]

REACTIONS (3)
  - Drug administration error [Unknown]
  - Product quality issue [Unknown]
  - Accidental exposure to product [Unknown]
